FAERS Safety Report 8505242-1 (Version None)
Quarter: 2012Q3

REPORT INFORMATION
  Report Type: 
  Country: None (occurrence: None)
  Receive Date: 20120712
  Receipt Date: 20120710
  Transmission Date: 20120928
  Serious: Yes (Other)
  Sender: FDA-Public Use
  Company Number: US-PFIZER INC-2012165670

PATIENT
  Sex: Female
  Weight: 56 kg

DRUGS (1)
  1. TIKOSYN [Suspect]
     Indication: ARRHYTHMIA
     Dosage: 0.25 MG, 2X/DAY
     Route: 048
     Dates: start: 20020101

REACTIONS (2)
  - GASTRITIS FUNGAL [None]
  - GASTRITIS BACTERIAL [None]
